FAERS Safety Report 19331039 (Version 1)
Quarter: 2021Q2

REPORT INFORMATION
  Report Type: Spontaneous
  Country: FI (occurrence: FI)
  Receive Date: 20210528
  Receipt Date: 20210528
  Transmission Date: 20210717
  Serious: Yes (Other)
  Sender: FDA-Public Use
  Company Number: FI-PFIZER INC-2021565265

PATIENT
  Age: 31 Year
  Sex: Female

DRUGS (8)
  1. PANADOL [Suspect]
     Active Substance: ACETAMINOPHEN
     Dosage: UNK
  2. LYRICA [Suspect]
     Active Substance: PREGABALIN
     Dosage: UNK
  3. TARGINIQ ER [Suspect]
     Active Substance: NALOXONE HYDROCHLORIDE\OXYCODONE HYDROCHLORIDE
     Dosage: UNK
  4. TRIPTYL [Suspect]
     Active Substance: AMITRIPTYLINE HYDROCHLORIDE
     Dosage: UNK
  5. BURANA [Suspect]
     Active Substance: IBUPROFEN
  6. GABRION [Suspect]
     Active Substance: GABAPENTIN
     Dosage: UNK
  7. OXYNORM [Suspect]
     Active Substance: OXYCODONE HYDROCHLORIDE
     Dosage: UNK
  8. ARCOXIA [Suspect]
     Active Substance: ETORICOXIB
     Dosage: UNK

REACTIONS (7)
  - Insomnia [Unknown]
  - Memory impairment [Unknown]
  - Decreased appetite [Unknown]
  - Arrhythmia [Unknown]
  - Palpitations [Unknown]
  - Emotional poverty [Unknown]
  - Asthenia [Unknown]
